FAERS Safety Report 10008761 (Version 2)
Quarter: 2014Q1

REPORT INFORMATION
  Report Type: Spontaneous
  Country: US (occurrence: US)
  Receive Date: 20140312
  Receipt Date: 20140312
  Transmission Date: 20141002
  Serious: No
  Sender: FDA-Public Use
  Company Number: US-INCYTE CORPORATION-2012IN000338

PATIENT
  Age: 80 Year
  Sex: Female
  Weight: 67.57 kg

DRUGS (3)
  1. JAKAFI [Suspect]
     Indication: MYELOFIBROSIS
     Dosage: 15 MG, BID
     Route: 048
     Dates: start: 20120113, end: 20120405
  2. CITALOPRAM [Concomitant]
  3. DOXEPIN [Concomitant]

REACTIONS (1)
  - Trigeminal neuralgia [Not Recovered/Not Resolved]
